FAERS Safety Report 12134790 (Version 2)
Quarter: 2016Q1

REPORT INFORMATION
  Report Type: Spontaneous
  Country: IT (occurrence: IT)
  Receive Date: 20160301
  Receipt Date: 20160310
  Transmission Date: 20160526
  Serious: Yes (Death)
  Sender: FDA-Public Use
  Company Number: IT-SA-2016SA039903

PATIENT
  Sex: Male

DRUGS (4)
  1. CLEXANE [Suspect]
     Active Substance: ENOXAPARIN SODIUM
     Route: 065
     Dates: start: 20140402, end: 20140403
  2. ENDOPROST [Suspect]
     Active Substance: ILOPROST TROMETHAMINE
     Indication: PERIPHERAL ISCHAEMIA
     Dosage: 0.25 NGR/ KG/MIN TO 0.4 NGR/KG/MIN USING A PERISTALTIC INFUSION PUMP
     Route: 042
     Dates: start: 20140402, end: 20140403
  3. ENDOPROST [Suspect]
     Active Substance: ILOPROST TROMETHAMINE
     Indication: PERIPHERAL ISCHAEMIA
     Dosage: 0.25 NGR/ KG/MIN TO 0.4 NGR/KG/MIN USING A PERISTALTIC INFUSION PUMP
     Route: 042
     Dates: start: 20140402, end: 20140403
  4. PRADAXA [Suspect]
     Active Substance: DABIGATRAN ETEXILATE MESYLATE
     Indication: ATRIAL FIBRILLATION
     Route: 065
     Dates: start: 20140101, end: 20140401

REACTIONS (3)
  - Medication error [Fatal]
  - Ventricular fibrillation [Fatal]
  - Cardiac arrest [Fatal]

NARRATIVE: CASE EVENT DATE: 20140403
